FAERS Safety Report 22216515 (Version 3)
Quarter: 2023Q2

REPORT INFORMATION
  Report Type: Report from Study
  Country: CA (occurrence: CA)
  Receive Date: 20230417
  Receipt Date: 20230427
  Transmission Date: 20230721
  Serious: Yes (Hospitalization, Other)
  Sender: FDA-Public Use
  Company Number: CA-ABBVIE-4718953

PATIENT
  Age: 42 Year
  Sex: Male

DRUGS (2)
  1. RINVOQ [Suspect]
     Active Substance: UPADACITINIB
     Indication: Crohn^s disease
     Dosage: FORM STRENGTH: 30 MILLIGRAM
     Route: 048
     Dates: start: 20230329, end: 20230405
  2. RINVOQ [Suspect]
     Active Substance: UPADACITINIB
     Indication: Crohn^s disease
     Route: 048

REACTIONS (6)
  - Stoma site haemorrhage [Recovered/Resolved]
  - Crohn^s disease [Not Recovered/Not Resolved]
  - Off label use [Unknown]
  - Product residue present [Unknown]
  - Stoma site haemorrhage [Unknown]
  - Stoma creation [Unknown]

NARRATIVE: CASE EVENT DATE: 20230404
